FAERS Safety Report 10723058 (Version 2)
Quarter: 2015Q1

REPORT INFORMATION
  Report Type: Spontaneous
  Country: GB (occurrence: None)
  Receive Date: 20150114
  Receipt Date: 20150206
  Transmission Date: 20150721
  Serious: Yes (Other)
  Sender: FDA-Public Use
  Company Number: GB-H14001-15-00035

PATIENT
  Age: 12 Year
  Sex: Female

DRUGS (13)
  1. CIPROFLOXACIN. [Suspect]
     Active Substance: CIPROFLOXACIN
     Indication: INFECTIVE PULMONARY EXACERBATION OF CYSTIC FIBROSIS
     Dosage: 1080 MG (360 MG, 3 IN 1 D), IV
     Route: 042
     Dates: start: 20141120, end: 20141129
  2. CREON(PANCREATIN) [Concomitant]
  3. FLUCLOXACILLIN(FLUCLOXACILLIN) [Concomitant]
  4. MEROPENEM(MEROPENEM) [Concomitant]
  5. SERETIDE(SERETIDE) [Concomitant]
  6. VITAMIN E SUBSTANCES (TOCOPHEROL) [Concomitant]
  7. SALBUTAMOL(SALBUTAMOL) [Concomitant]
  8. AMIKACIN SULFATE(AMIKACIN SULFATE)(AMIKACIN SULFATE) [Concomitant]
  9. URSODEOXYCHLOLIC ACID (URSODEOXYCHOLIC ACID) [Concomitant]
  10. AZITHROMYCIN(AZITHROMYCIN) [Concomitant]
  11. OMEPRAZOLE. [Concomitant]
     Active Substance: OMEPRAZOLE
  12. DORNASE ALFA (DORNASE ALFA)(DORNASE ALFA) [Concomitant]
  13. CIPROXIN [Suspect]
     Active Substance: CIPROFLOXACIN
     Indication: INFECTIVE PULMONARY EXACERBATION OF CYSTIC FIBROSIS
     Dosage: 1080 MG (360 MG, 3 IN 1 D), IV
     Route: 048
     Dates: start: 2014, end: 20141119

REACTIONS (3)
  - Joint swelling [None]
  - Arthritis [None]
  - Hypokinesia [None]

NARRATIVE: CASE EVENT DATE: 2014
